FAERS Safety Report 8925958 (Version 10)
Quarter: 2014Q3

REPORT INFORMATION
  Report Type: Spontaneous
  Country: GB (occurrence: GB)
  Receive Date: 20121126
  Receipt Date: 20140801
  Transmission Date: 20150326
  Serious: Yes (Death, Other)
  Sender: FDA-Public Use
  Company Number: PHFR2012GB006004

PATIENT
  Age: 57 Year
  Sex: Male

DRUGS (6)
  1. RANITIDINE [Concomitant]
     Active Substance: RANITIDINE\RANITIDINE HYDROCHLORIDE
     Indication: GASTROOESOPHAGEAL REFLUX DISEASE
     Dosage: 300 MG, UNK
  2. CLOZARIL [Suspect]
     Active Substance: CLOZAPINE
     Indication: SCHIZOPHRENIA
     Dosage: 325 MG
     Route: 048
     Dates: start: 20030624
  3. CLOZARIL [Suspect]
     Active Substance: CLOZAPINE
     Dosage: 375 MG, DAILY
     Route: 048
     Dates: start: 2012
  4. CHLORPROMAZINE [Concomitant]
     Active Substance: CHLORPROMAZINE
     Dosage: 25 MG, TID
     Route: 048
  5. RANITIDINE [Concomitant]
     Active Substance: RANITIDINE\RANITIDINE HYDROCHLORIDE
     Dosage: 150 MG, BID
     Route: 048
  6. CHLORPROMAZINE [Concomitant]
     Active Substance: CHLORPROMAZINE
     Indication: PSYCHOTIC DISORDER
     Dosage: 50 MG, UNK
     Route: 048
     Dates: start: 20140624

REACTIONS (6)
  - Neutrophil count increased [Unknown]
  - Platelet count increased [Unknown]
  - Haemoglobin decreased [Not Recovered/Not Resolved]
  - White blood cell count increased [Unknown]
  - Death [Fatal]
  - Lung neoplasm malignant [Not Recovered/Not Resolved]

NARRATIVE: CASE EVENT DATE: 20130730
